FAERS Safety Report 5672454-4 (Version None)
Quarter: 2008Q1

REPORT INFORMATION
  Report Type: 
  Country: None (occurrence: None)
  Receive Date: 20080319
  Receipt Date: 20080311
  Transmission Date: 20080703
  Serious: Yes (Hospitalization)
  Sender: FDA-Public Use
  Company Number: US-JNJFOC-20080206378

PATIENT
  Sex: Male
  Weight: 90.72 kg

DRUGS (4)
  1. RISPERDAL CONSTA [Suspect]
     Route: 030
  2. RISPERDAL CONSTA [Suspect]
     Indication: POST-TRAUMATIC STRESS DISORDER
     Route: 030
  3. ATIVAN [Concomitant]
     Indication: NERVOUSNESS
     Route: 048
  4. LEVOTHYROXINE SODIUM [Concomitant]
     Indication: THYROID DISORDER
     Route: 048

REACTIONS (17)
  - APPETITE DISORDER [None]
  - CHEST PAIN [None]
  - COORDINATION ABNORMAL [None]
  - EXCESSIVE MASTURBATION [None]
  - EXERCISE TOLERANCE DECREASED [None]
  - FEELING ABNORMAL [None]
  - HEARING IMPAIRED [None]
  - HYPERHIDROSIS [None]
  - INCORRECT ROUTE OF DRUG ADMINISTRATION [None]
  - INSOMNIA [None]
  - LUNG INFECTION [None]
  - MEMORY IMPAIRMENT [None]
  - MUSCLE DISORDER [None]
  - ORCHITIS [None]
  - PAIN [None]
  - PULSE ABNORMAL [None]
  - RESPIRATORY DISORDER [None]
